FAERS Safety Report 7598163-2 (Version None)
Quarter: 2011Q3

REPORT INFORMATION
  Report Type: 
  Country: None (occurrence: None)
  Receive Date: 20110708
  Receipt Date: 20110706
  Transmission Date: 20111222
  Serious: Yes (Life-Threatening, Hospitalization, Other)
  Sender: FDA-Public Use
  Company Number: FR-PFIZER INC-2011131121

PATIENT
  Age: 36 Year
  Sex: Male

DRUGS (1)
  1. CELEBREX [Suspect]
     Indication: ANKYLOSING SPONDYLITIS
     Dosage: 200 MG, 1X/DAY
     Dates: start: 19900101, end: 20110606

REACTIONS (2)
  - CELLULITIS [None]
  - SEPTIC SHOCK [None]
